FAERS Safety Report 19487411 (Version 1)
Quarter: 2021Q3

REPORT INFORMATION
  Report Type: Spontaneous
  Country: CN (occurrence: CN)
  Receive Date: 20210702
  Receipt Date: 20210702
  Transmission Date: 20211014
  Serious: Yes (Other)
  Sender: FDA-Public Use
  Company Number: CN-ASTRAZENECA-2021A576934

PATIENT
  Age: 70 Year
  Sex: Male
  Weight: 70 kg

DRUGS (2)
  1. BUDESONIDE SUSPENSION FOR INHALATION [Suspect]
     Active Substance: BUDESONIDE
     Indication: COR PULMONALE
     Route: 055
     Dates: start: 20210616, end: 20210620
  2. TERBUTALINE SULPHATE SOLUTION FOR NEBULIZATION [Suspect]
     Active Substance: TERBUTALINE SULFATE
     Route: 055

REACTIONS (2)
  - Pruritus [Recovering/Resolving]
  - Ecchymosis [Recovering/Resolving]

NARRATIVE: CASE EVENT DATE: 20210620
